FAERS Safety Report 4742424-9 (Version None)
Quarter: 2005Q3

REPORT INFORMATION
  Report Type: 
  Country: None (occurrence: None)
  Receive Date: 20050808
  Receipt Date: 20050726
  Transmission Date: 20060218
  Serious: Yes (Other)
  Sender: FDA-Public Use
  Company Number: HQWYE309801APR04

PATIENT
  Age: 81 Year
  Sex: Male
  Weight: 84.9 kg

DRUGS (12)
  1. MYLOTARG [Suspect]
     Indication: ACUTE MYELOID LEUKAEMIA
     Dosage: SEE IMAGE
     Route: 042
     Dates: start: 20040315, end: 20040315
  2. MYLOTARG [Suspect]
     Indication: ACUTE MYELOID LEUKAEMIA
     Dosage: SEE IMAGE
     Route: 042
     Dates: start: 20040322, end: 20040322
  3. CALCIUM (CALCIUM) [Concomitant]
  4. XANAX [Concomitant]
  5. MAGNESIUM (MAGNESUM) [Concomitant]
  6. PROTONIX [Concomitant]
  7. ALLOPURINOL [Concomitant]
  8. ZOFRAN [Concomitant]
  9. CYTARABINE [Concomitant]
  10. AMPHOJEL (ALUMINIUM HYDROXIDE) [Concomitant]
  11. PROCHLORPERAZINE MALEATE [Concomitant]
  12. NYSTATIN [Concomitant]

REACTIONS (4)
  - ASPARTATE AMINOTRANSFERASE INCREASED [None]
  - BLOOD ALKALINE PHOSPHATASE INCREASED [None]
  - PYREXIA [None]
  - WEIGHT INCREASED [None]
